FAERS Safety Report 10168123 (Version 1)
Quarter: 2014Q2

REPORT INFORMATION
  Report Type: Spontaneous
  Country: IN (occurrence: IN)
  Receive Date: 20140512
  Receipt Date: 20140512
  Transmission Date: 20141212
  Serious: Yes (Hospitalization)
  Sender: FDA-Public Use
  Company Number: IN-MYLANLABS-2014S1010190

PATIENT
  Age: 21 Year
  Sex: Male

DRUGS (5)
  1. PHENYTOIN [Suspect]
     Indication: GENERALISED TONIC-CLONIC SEIZURE
     Dosage: 300MG PER DAY IN DIVIDED DOSES
     Route: 065
  2. ISONIAZID [Interacting]
     Indication: MENINGITIS TUBERCULOUS
     Route: 065
  3. RIFAMPICIN [Concomitant]
     Indication: MENINGITIS TUBERCULOUS
     Route: 065
  4. PYRAZINAMIDE [Concomitant]
     Indication: MENINGITIS TUBERCULOUS
     Route: 065
  5. ETHAMBUTOL [Concomitant]
     Indication: MENINGITIS TUBERCULOUS
     Route: 065

REACTIONS (13)
  - Drug interaction [Recovering/Resolving]
  - Toxicity to various agents [Recovering/Resolving]
  - Hepatitis [Recovering/Resolving]
  - Vomiting [Recovering/Resolving]
  - Ataxia [Recovering/Resolving]
  - Vision blurred [Recovering/Resolving]
  - Gait disturbance [Unknown]
  - Lip swelling [Recovering/Resolving]
  - Swelling face [Unknown]
  - Urinary incontinence [Recovering/Resolving]
  - Rash macular [Recovering/Resolving]
  - Nystagmus [Unknown]
  - Urine output decreased [Unknown]
